FAERS Safety Report 5058505-9 (Version None)
Quarter: 2006Q2

REPORT INFORMATION
  Report Type: 
  Country: None (occurrence: None)
  Receive Date: 20060627
  Receipt Date: 20050803
  Transmission Date: 20061013
  Serious: Yes (Hospitalization)
  Sender: FDA-Public Use
  Company Number: 413093

PATIENT
  Age: 80 Year
  Sex: Female
  Weight: 54.4 kg

DRUGS (1)
  1. XELODA [Suspect]
     Indication: COLON CANCER
     Dosage: 4000 MG DAILY ORAL
     Route: 048

REACTIONS (3)
  - DIARRHOEA [None]
  - FEEDING DISORDER [None]
  - ORAL MUCOSAL BLISTERING [None]
